FAERS Safety Report 4795323-0 (Version None)
Quarter: 2005Q4

REPORT INFORMATION
  Report Type: 
  Country: None (occurrence: None)
  Receive Date: 20051012
  Receipt Date: 20051005
  Transmission Date: 20060501
  Serious: Yes (Congenital Anomaly, Other)
  Sender: FDA-Public Use
  Company Number: GB-JNJFOC-20050906027

PATIENT
  Sex: Male

DRUGS (4)
  1. LAMOTRIGINE [Suspect]
  2. TOPAMAX [Suspect]
  3. VIGABATRINE [Suspect]
  4. CLOBAZAM [Suspect]

REACTIONS (2)
  - CONGENITAL GENITAL MALFORMATION MALE [None]
  - DRUG EXPOSURE DURING PREGNANCY [None]
